FAERS Safety Report 6063646-3 (Version None)
Quarter: 2009Q1

REPORT INFORMATION
  Report Type: 
  Country: None (occurrence: None)
  Receive Date: 20090129
  Receipt Date: 20090123
  Transmission Date: 20090719
  Serious: Yes (Death)
  Sender: FDA-Public Use
  Company Number: 2008S1022035

PATIENT
  Age: 93 Year
  Sex: Female

DRUGS (8)
  1. FENTANYL TRANSDERMAL SYSTEM [Suspect]
     Indication: BACK PAIN
     Dosage: 50 UG; EVERY HOUR; TRANSDERMAL
     Route: 062
     Dates: start: 20060101
  2. VICODIN [Suspect]
     Indication: BREAKTHROUGH PAIN
     Dosage: DAILY; ORAL
     Route: 048
     Dates: end: 20081101
  3. ARICEPT [Concomitant]
  4. LEVOTHYROXINE SODIUM [Concomitant]
  5. MEGESTROL ACETATE [Concomitant]
  6. GLIPIZIDE [Concomitant]
  7. CENTRUM [Concomitant]
  8. FENTANYL TRANSDERMAL SYSTEM [Suspect]
     Indication: BACK PAIN
     Dosage: 50 UG; EVERY HOUR; TRANSDERMAL
     Route: 062
     Dates: end: 20081129

REACTIONS (6)
  - CARDIAC ARREST [None]
  - FATIGUE [None]
  - INCORRECT DOSE ADMINISTERED [None]
  - NAUSEA [None]
  - PRODUCT QUALITY ISSUE [None]
  - VOMITING [None]
